FAERS Safety Report 7332753-7 (Version None)
Quarter: 2011Q1

REPORT INFORMATION
  Report Type: 
  Country: None (occurrence: None)
  Receive Date: 20110304
  Receipt Date: 20110223
  Transmission Date: 20110831
  Serious: Yes (Other)
  Sender: FDA-Public Use
  Company Number: US-SANOFI-AVENTIS-2011SA012061

PATIENT
  Age: 60 Year
  Sex: Female
  Weight: 52.16 kg

DRUGS (2)
  1. ARAVA [Suspect]
     Indication: RHEUMATOID ARTHRITIS
     Route: 048
     Dates: start: 20100101
  2. ORENCIA [Concomitant]
     Route: 051

REACTIONS (5)
  - PAIN [None]
  - RHEUMATOID ARTHRITIS [None]
  - KERATORHEXIS [None]
  - DIARRHOEA [None]
  - MALAISE [None]
